FAERS Safety Report 19434538 (Version 1)
Quarter: 2021Q2

REPORT INFORMATION
  Report Type: Spontaneous
  Country: US (occurrence: US)
  Receive Date: 20210617
  Receipt Date: 20210617
  Transmission Date: 20210717
  Serious: No
  Sender: FDA-Public Use
  Company Number: US-ROCHE-2656074

PATIENT
  Sex: Female

DRUGS (5)
  1. ASPIRIN 81 [Concomitant]
     Active Substance: ASPIRIN
  2. PREDNISONE. [Concomitant]
     Active Substance: PREDNISONE
  3. ACTEMRA [Suspect]
     Active Substance: TOCILIZUMAB
     Indication: GIANT CELL ARTERITIS
     Dosage: INJECT 162 MG SQ ONCE IN WEEK
     Route: 058
     Dates: start: 20200305
  4. ACTEMRA [Suspect]
     Active Substance: TOCILIZUMAB
  5. ACTEMRA [Suspect]
     Active Substance: TOCILIZUMAB

REACTIONS (2)
  - Pain [Not Recovered/Not Resolved]
  - Burning sensation [Recovered/Resolved]
